FAERS Safety Report 16672679 (Version 1)
Quarter: 2019Q3

REPORT INFORMATION
  Report Type: Spontaneous
  Country: AU (occurrence: AU)
  Receive Date: 20190806
  Receipt Date: 20190806
  Transmission Date: 20191004
  Serious: Yes (Other)
  Sender: FDA-Public Use
  Company Number: AU-MYLANLABS-2019M1073106

PATIENT
  Age: 33 Year
  Sex: Male

DRUGS (8)
  1. NATAMYCIN [Concomitant]
     Active Substance: NATAMYCIN
     Indication: INFECTIVE KERATITIS
  2. CIPROFLOXACIN. [Concomitant]
     Active Substance: CIPROFLOXACIN
     Indication: INFECTIVE KERATITIS
  3. VORICONAZOLE. [Suspect]
     Active Substance: VORICONAZOLE
     Indication: INFECTIVE KERATITIS
  4. NATAMYCIN [Concomitant]
     Active Substance: NATAMYCIN
     Indication: EXSEROHILUM INFECTION
     Dosage: HOURLY
     Route: 061
  5. CIPROFLOXACIN. [Concomitant]
     Active Substance: CIPROFLOXACIN
     Indication: EXSEROHILUM INFECTION
     Dosage: HOURLY
     Route: 061
  6. VORICONAZOLE. [Suspect]
     Active Substance: VORICONAZOLE
     Indication: EXSEROHILUM INFECTION
     Dosage: HOURLY
     Route: 061
  7. GENTAMICIN. [Concomitant]
     Active Substance: GENTAMICIN
     Indication: EXSEROHILUM INFECTION
     Dosage: HOURLY
     Route: 061
  8. GENTAMICIN. [Concomitant]
     Active Substance: GENTAMICIN
     Indication: INFECTIVE KERATITIS

REACTIONS (1)
  - Therapy non-responder [Unknown]
